FAERS Safety Report 24844681 (Version 1)
Quarter: 2025Q1

REPORT INFORMATION
  Report Type: Report from Study
  Country: IN (occurrence: IN)
  Receive Date: 20250115
  Receipt Date: 20250115
  Transmission Date: 20250408
  Serious: Yes (Other)
  Sender: ROCHE
  Company Number: IN-ROCHE-10000174291

PATIENT
  Age: 59 Year
  Sex: Female

DRUGS (1)
  1. KADCYLA [Suspect]
     Active Substance: ADO-TRASTUZUMAB EMTANSINE
     Indication: Breast cancer metastatic
     Route: 042
     Dates: start: 20231025

REACTIONS (10)
  - Hepatic lesion [Unknown]
  - Lymphadenopathy mediastinal [Unknown]
  - Liver disorder [Unknown]
  - Metastases to liver [Unknown]
  - Portal tract inflammation [Unknown]
  - Hepatic neoplasm [Unknown]
  - Lung neoplasm [Unknown]
  - Portal hypertension [Unknown]
  - Hepatitis [Unknown]
  - Hepatic steatosis [Unknown]

NARRATIVE: CASE EVENT DATE: 20241114
